FAERS Safety Report 6443512-1 (Version None)
Quarter: 2009Q4

REPORT INFORMATION
  Report Type: 
  Country: None (occurrence: None)
  Receive Date: 20091113
  Receipt Date: 20091027
  Transmission Date: 20100525
  Serious: Yes (Death)
  Sender: FDA-Public Use
  Company Number: AE 2009-105

PATIENT
  Age: 46 Year
  Sex: Female

DRUGS (34)
  1. FAZACLO ODT [Suspect]
     Dosage: 50 MG TID PO
     Route: 048
     Dates: start: 20090623, end: 20090828
  2. ALBUTEROL [Concomitant]
  3. COGENTIN [Concomitant]
  4. AUGMENTIN [Concomitant]
  5. TYLENOL W/ CODEINE NO. 3 [Concomitant]
  6. CRESTOR [Concomitant]
  7. BENTYL [Concomitant]
  8. FLONASE [Concomitant]
  9. MULTI-VITAMIN [Concomitant]
  10. FLOVENT [Concomitant]
  11. COLACE [Concomitant]
  12. LOVENOX [Concomitant]
  13. NIACIN [Concomitant]
  14. RESTORIL [Concomitant]
  15. ASCAL [Concomitant]
  16. PREVACID [Concomitant]
  17. DIGOXIN [Concomitant]
  18. THEOPHYLLINE [Concomitant]
  19. XOPENEX [Concomitant]
  20. TRILEPTAL [Concomitant]
  21. IPRATROPIUM [Concomitant]
  22. ZOSYN [Concomitant]
  23. VERAPAMIL [Concomitant]
  24. HALOPERIDOL DECANOATE [Concomitant]
  25. ZETIA [Concomitant]
  26. ATIVAN PRN [Concomitant]
  27. CIPROFLOXACIN [Concomitant]
  28. COZAAR [Concomitant]
  29. HYDROCHLOROTHIAZIDE [Concomitant]
  30. PREDNISONE [Concomitant]
  31. SINGULAIR [Concomitant]
  32. TRAZODONE HCL [Concomitant]
  33. CLARITIN [Concomitant]
  34. CEFTRIAXONE PIGGYBACK [Concomitant]

REACTIONS (1)
  - DEATH [None]
